APPROVED DRUG PRODUCT: SUMAVEL DOSEPRO
Active Ingredient: SUMATRIPTAN SUCCINATE
Strength: EQ 4MG BASE/0.5ML (EQ 8MG BASE/ML)
Dosage Form/Route: INJECTABLE;SUBCUTANEOUS
Application: N022239 | Product #002
Applicant: ENDO OPERATIONS LTD
Approved: Nov 26, 2013 | RLD: Yes | RS: No | Type: DISCN